FAERS Safety Report 5943422-X (Version None)
Quarter: 2008Q4

REPORT INFORMATION
  Report Type: 
  Country: None (occurrence: None)
  Receive Date: 20081105
  Receipt Date: 20081105
  Transmission Date: 20090506
  Serious: Yes (Other)
  Sender: FDA-Public Use
  Company Number: None

PATIENT
  Age: 50 Year
  Sex: Female
  Weight: 55.7924 kg

DRUGS (2)
  1. BOTOX [Suspect]
     Indication: MIGRAINE
     Dosage: ONE TIME DOSE IM
     Route: 030
     Dates: start: 20081023, end: 20081023
  2. BOTOX [Suspect]
     Indication: SKIN COSMETIC PROCEDURE
     Dosage: ONE TIME DOSE IM
     Route: 030
     Dates: start: 20081023, end: 20081023

REACTIONS (3)
  - ASTHENOPIA [None]
  - EYELID PTOSIS [None]
  - VISUAL ACUITY REDUCED [None]
